FAERS Safety Report 18998686 (Version 11)
Quarter: 2022Q3

REPORT INFORMATION
  Report Type: Report from Study
  Country: CN (occurrence: CN)
  Receive Date: 20210311
  Receipt Date: 20220823
  Transmission Date: 20221027
  Serious: Yes (Other)
  Sender: FDA-Public Use
  Company Number: NVSC2020CN316415

PATIENT
  Age: 57 Year
  Sex: Male
  Weight: 53 kg

DRUGS (6)
  1. PAZOPANIB [Suspect]
     Active Substance: PAZOPANIB
     Indication: Metastatic renal cell carcinoma
     Dosage: 800 MG
     Route: 048
     Dates: start: 20200513, end: 20200519
  2. PAZOPANIB [Suspect]
     Active Substance: PAZOPANIB
     Dosage: 800 MG
     Route: 048
     Dates: start: 202008, end: 202009
  3. PAZOPANIB [Suspect]
     Active Substance: PAZOPANIB
     Dosage: 600 MG
     Route: 048
     Dates: start: 20201208, end: 202106
  4. PAZOPANIB [Suspect]
     Active Substance: PAZOPANIB
     Dosage: 800 MG
     Route: 048
     Dates: start: 20210605, end: 2021
  5. PAZOPANIB [Suspect]
     Active Substance: PAZOPANIB
     Dosage: 800 MG
     Route: 048
     Dates: start: 20210608
  6. SILIBININ [Concomitant]
     Active Substance: SILIBININ
     Indication: Prophylaxis
     Dosage: 2 DF
     Route: 048
     Dates: start: 202012, end: 20210615

REACTIONS (10)
  - Renal impairment [Not Recovered/Not Resolved]
  - Abdominal discomfort [Recovered/Resolved]
  - Blood thyroid stimulating hormone increased [Recovering/Resolving]
  - White blood cell count decreased [Unknown]
  - Cough [Recovered/Resolved]
  - Hepatic function abnormal [Not Recovered/Not Resolved]
  - Diarrhoea [Not Recovered/Not Resolved]
  - Headache [Recovered/Resolved]
  - Headache [Recovered/Resolved]
  - Skin disorder [Recovered/Resolved]

NARRATIVE: CASE EVENT DATE: 20200519
